FAERS Safety Report 22121596 (Version 1)
Quarter: 2023Q1

REPORT INFORMATION
  Report Type: Spontaneous
  Country: US (occurrence: None)
  Receive Date: 20230321
  Receipt Date: 20230321
  Transmission Date: 20230418
  Serious: Yes (Other)
  Sender: FDA-Public Use
  Company Number: None

PATIENT
  Age: 80 Year
  Sex: Female
  Weight: 47.6 kg

DRUGS (1)
  1. ABECMA [Suspect]
     Active Substance: IDECABTAGENE VICLEUCEL

REACTIONS (4)
  - Pyrexia [None]
  - Cytokine release syndrome [None]
  - Urinary tract infection [None]
  - Infusion related reaction [None]

NARRATIVE: CASE EVENT DATE: 20230203
